FAERS Safety Report 11585554 (Version 1)
Quarter: 2015Q4

REPORT INFORMATION
  Report Type: Report from Study
  Country: ES (occurrence: ES)
  Receive Date: 20151001
  Receipt Date: 20151001
  Transmission Date: 20160304
  Serious: Yes (Death, Hospitalization)
  Sender: FDA-Public Use
  Company Number: ES-GILEAD-2014-0115197

PATIENT
  Age: 76 Year
  Sex: Female

DRUGS (10)
  1. RITUXIMAB [Suspect]
     Active Substance: RITUXIMAB
     Indication: NON-HODGKIN^S LYMPHOMA UNSPECIFIED HISTOLOGY INDOLENT
     Dosage: 638 MG, CYCLICAL
     Route: 042
     Dates: start: 20140526, end: 20140821
  2. LEVOTHROID [Concomitant]
     Active Substance: LEVOTHYROXINE SODIUM
     Indication: HYPOTHYROIDISM
     Dosage: UNK
     Route: 065
  3. VALSARTAN. [Concomitant]
     Active Substance: VALSARTAN
     Indication: HYPERTENSION
     Dosage: UNK
     Route: 065
     Dates: end: 20140910
  4. SEPTRIN [Concomitant]
     Active Substance: SULFAMETHOXAZOLE\TRIMETHOPRIM
     Indication: PROPHYLAXIS
     Dosage: UNK
     Route: 065
     Dates: start: 20140526
  5. ACFOL [Concomitant]
     Active Substance: FOLIC ACID
     Indication: PROPHYLAXIS
     Dosage: UNK
     Route: 065
     Dates: start: 20140526
  6. ATENOLOL. [Concomitant]
     Active Substance: ATENOLOL
     Indication: HYPERTENSION
     Dosage: UNK
     Route: 065
     Dates: end: 20140910
  7. BENDAMUSTINE [Suspect]
     Active Substance: BENDAMUSTINE
     Indication: NON-HODGKIN^S LYMPHOMA UNSPECIFIED HISTOLOGY INDOLENT
     Dosage: 102 MG, CYCLICAL
     Route: 042
     Dates: start: 20140526, end: 20140822
  8. ALLOPURINOL. [Concomitant]
     Active Substance: ALLOPURINOL
  9. IDELALISIB [Suspect]
     Active Substance: IDELALISIB
     Indication: NON-HODGKIN^S LYMPHOMA UNSPECIFIED HISTOLOGY INDOLENT
     Dosage: 150 MG, BID
     Route: 048
     Dates: start: 20140526, end: 20140910
  10. AMLODIPINE [Concomitant]
     Active Substance: AMLODIPINE BESYLATE
     Indication: HYPERTENSION

REACTIONS (8)
  - Condition aggravated [None]
  - Blood creatine abnormal [None]
  - Febrile neutropenia [Fatal]
  - Multi-organ failure [None]
  - Haematocrit decreased [None]
  - White blood cell count decreased [None]
  - Haemoglobin decreased [None]
  - Hypertension [None]

NARRATIVE: CASE EVENT DATE: 20140910
